FAERS Safety Report 5621825-0 (Version None)
Quarter: 2008Q1

REPORT INFORMATION
  Report Type: 
  Country: None (occurrence: None)
  Receive Date: 20080114
  Receipt Date: 20070619
  Transmission Date: 20080703
  Serious: Yes (Hospitalization)
  Sender: FDA-Public Use
  Company Number: A03200704108

PATIENT
  Age: 68 Year
  Sex: Female
  Weight: 64.4 kg

DRUGS (3)
  1. PLAVIX [Suspect]
     Indication: BLOOD PHOSPHORUS
     Dosage: 75 MG QD -ORAL
     Route: 048
  2. PLAVIX [Suspect]
     Indication: BLOOD PHOSPHORUS
     Dosage: 75 MG THREE TIMES PER WEEK- ORAL
     Route: 048
     Dates: start: 20070101
  3. 31 UNSPECIFIED MEDICATIONS [Concomitant]

REACTIONS (3)
  - CONTUSION [None]
  - MYOCARDIAL INFARCTION [None]
  - ULCER HAEMORRHAGE [None]
